FAERS Safety Report 8950247 (Version 1)
Quarter: 2012Q4

REPORT INFORMATION
  Report Type: 
  Country: US (occurrence: US)
  Receive Date: 20121205
  Receipt Date: 20121205
  Transmission Date: 20130627
  Serious: No
  Sender: FDA-Public Use
  Company Number: US-ASTELLAS-2009000299

PATIENT
  Sex: Male

DRUGS (4)
  1. TARCEVA [Suspect]
     Indication: NON-SMALL CELL LUNG CANCER
     Dosage: 150 mg, UID/QD
     Route: 048
     Dates: start: 200711, end: 2008
  2. TARCEVA [Suspect]
     Dosage: 50 mg, UID/QD
     Route: 048
     Dates: start: 2008, end: 2008
  3. TARCEVA [Suspect]
     Dosage: 100 mg, UID/QD
     Route: 048
     Dates: start: 2008, end: 2008
  4. TARCEVA [Suspect]
     Dosage: 50 mg, (2-25 mg) 3xWeekly
     Route: 048

REACTIONS (9)
  - Inappropriate schedule of drug administration [Unknown]
  - Infected skin ulcer [Not Recovered/Not Resolved]
  - Weight increased [Unknown]
  - Muscle spasms [Not Recovered/Not Resolved]
  - Eye disorder [Not Recovered/Not Resolved]
  - Tooth disorder [Not Recovered/Not Resolved]
  - Rash pruritic [Recovering/Resolving]
  - Diarrhoea [Recovering/Resolving]
  - Dyspnoea [Not Recovered/Not Resolved]
